FAERS Safety Report 26042991 (Version 1)
Quarter: 2025Q4

REPORT INFORMATION
  Report Type: Spontaneous
  Country: US (occurrence: US)
  Receive Date: 20251113
  Receipt Date: 20251113
  Transmission Date: 20260118
  Serious: No
  Sender: ANI
  Company Number: US-ANIPHARMA-2025-US-046326

PATIENT
  Sex: Female

DRUGS (1)
  1. CORTICOTROPIN [Suspect]
     Active Substance: CORTICOTROPIN
     Indication: Dry eye
     Dosage: 1 ML 2 TIMES A WEEK
     Route: 058
     Dates: start: 202509

REACTIONS (8)
  - Swelling [Unknown]
  - Swelling face [Unknown]
  - Vaginal haemorrhage [Unknown]
  - Headache [Unknown]
  - Nausea [Unknown]
  - Facial pain [Unknown]
  - Pain in jaw [Unknown]
  - Toothache [Unknown]
